FAERS Safety Report 16218102 (Version 3)
Quarter: 2021Q1

REPORT INFORMATION
  Report Type: Spontaneous
  Country: US (occurrence: US)
  Receive Date: 20190419
  Receipt Date: 20210105
  Transmission Date: 20210419
  Serious: Yes (Death, Hospitalization)
  Sender: FDA-Public Use
  Company Number: US-JNJFOC-20190413129

PATIENT
  Age: 80 Year
  Sex: Male

DRUGS (25)
  1. GLIPIZIDE. [Concomitant]
     Active Substance: GLIPIZIDE
  2. PROCHLORPERAZINE. [Concomitant]
     Active Substance: PROCHLORPERAZINE
  3. LEVEMIR [Concomitant]
     Active Substance: INSULIN DETEMIR
  4. MAGNESIUM [Concomitant]
     Active Substance: MAGNESIUM
  5. ACYCLOVIR [ACICLOVIR] [Concomitant]
     Active Substance: ACYCLOVIR
  6. TRAMADOL. [Concomitant]
     Active Substance: TRAMADOL
  7. LEVAQUIN [Concomitant]
     Active Substance: LEVOFLOXACIN
  8. TYLENOL [Concomitant]
     Active Substance: ACETAMINOPHEN
  9. SEROQUEL [Concomitant]
     Active Substance: QUETIAPINE FUMARATE
  10. ALLOPURINOL. [Concomitant]
     Active Substance: ALLOPURINOL
  11. ATIVAN [Concomitant]
     Active Substance: LORAZEPAM
  12. ALBUTEROL [SALBUTAMOL] [Concomitant]
     Active Substance: ALBUTEROL
  13. XARELTO [Suspect]
     Active Substance: RIVAROXABAN
     Indication: PULMONARY EMBOLISM
     Dosage: 15 MG TWICE DAILY FOR 21 DAYS AND THEN 20 MG ONCE DAILY
     Route: 048
     Dates: start: 20180810, end: 20180829
  14. XARELTO [Suspect]
     Active Substance: RIVAROXABAN
     Route: 048
     Dates: start: 20181001, end: 20181104
  15. ASPIRIN                            /00002701/ [Suspect]
     Active Substance: ASPIRIN
     Indication: PRODUCT USED FOR UNKNOWN INDICATION
     Route: 065
  16. COMPAZINE [Concomitant]
     Active Substance: PROCHLORPERAZINE MALEATE
  17. ZOFRAN [Concomitant]
     Active Substance: ONDANSETRON HYDROCHLORIDE
  18. FUROSEMIDE. [Concomitant]
     Active Substance: FUROSEMIDE
  19. SODIUM CHLORIDE. [Concomitant]
     Active Substance: SODIUM CHLORIDE
  20. FERROSOL [Concomitant]
  21. NITROFURANTOIN. [Concomitant]
     Active Substance: NITROFURANTOIN
  22. ENOXAPARIN [Concomitant]
     Active Substance: ENOXAPARIN
  23. DUTASTERIDE. [Concomitant]
     Active Substance: DUTASTERIDE
  24. VITAMIN B COMPLEX [Concomitant]
     Active Substance: CYANOCOBALAMIN\DEXPANTHENOL\NIACINAMIDE\PYRIDOXINE HYDROCHLORIDE\RIBOFLAVIN 5^-PHOSPHATE SODIUM\THIAMINE HYDROCHLORIDE\VITAMIN B COMPLEX
  25. COLACE [Concomitant]
     Active Substance: DOCUSATE SODIUM

REACTIONS (2)
  - Gastrointestinal haemorrhage [Unknown]
  - Hypovolaemic shock [Recovering/Resolving]

NARRATIVE: CASE EVENT DATE: 20180824
